FAERS Safety Report 20701511 (Version 3)
Quarter: 2022Q2

REPORT INFORMATION
  Report Type: Spontaneous
  Country: FR (occurrence: FR)
  Receive Date: 20220412
  Receipt Date: 20220509
  Transmission Date: 20220721
  Serious: Yes (Hospitalization, Other)
  Sender: FDA-Public Use
  Company Number: FR-SA-2017SA032108

PATIENT
  Sex: Female

DRUGS (32)
  1. REVLIMID [Suspect]
     Active Substance: LENALIDOMIDE
     Indication: Product used for unknown indication
     Dosage: 5 MG, QD
     Route: 065
  2. REVLIMID [Suspect]
     Active Substance: LENALIDOMIDE
     Dosage: 5 MG, QD
     Route: 065
  3. PLAQUENIL [Suspect]
     Active Substance: HYDROXYCHLOROQUINE SULFATE
     Indication: Hypertension
     Dosage: 200 MG, BID
     Route: 048
     Dates: start: 201512, end: 201606
  4. PLAQUENIL [Suspect]
     Active Substance: HYDROXYCHLOROQUINE SULFATE
     Indication: Chronic cutaneous lupus erythematosus
     Dosage: 2 DF,QD
     Route: 048
     Dates: start: 201512
  5. PLAQUENIL [Suspect]
     Active Substance: HYDROXYCHLOROQUINE SULFATE
     Dosage: 45 DF,1X
     Route: 048
     Dates: start: 20161127, end: 20161127
  6. THALIDOMIDE [Suspect]
     Active Substance: THALIDOMIDE
     Indication: Chronic cutaneous lupus erythematosus
     Dosage: 28 DF,1X
     Route: 048
     Dates: start: 20161127, end: 20161127
  7. THALIDOMIDE [Suspect]
     Active Substance: THALIDOMIDE
     Dosage: 100 MG, QD
     Route: 065
  8. THALIDOMIDE [Suspect]
     Active Substance: THALIDOMIDE
     Dosage: 50 MG, QD
     Route: 065
  9. THALIDOMIDE [Suspect]
     Active Substance: THALIDOMIDE
     Dosage: 1 DF,UNK
     Route: 048
     Dates: start: 20160613
  10. NIFEDIPINE [Suspect]
     Active Substance: NIFEDIPINE
     Indication: Product used for unknown indication
     Dosage: LP 30 1 PER DAY
     Route: 065
  11. NIFEDIPINE [Suspect]
     Active Substance: NIFEDIPINE
     Dosage: LP 30 1 PER DAY
     Route: 065
  12. MINERAL OIL [Concomitant]
     Active Substance: MINERAL OIL
     Dosage: LANSOYL SINGLE DOSE 1 DOSE AT 8:00, 1 DOSE AT 12:00, 1 DOSE AT 19:00
  13. MINERAL OIL [Concomitant]
     Active Substance: MINERAL OIL
     Dosage: LANSOYL SINGLE DOSE 1 DOSE AT 8:00, 1 DOSE AT 12:00, 1 DOSE AT 19:00
  14. ACETAMINOPHEN [Concomitant]
     Active Substance: ACETAMINOPHEN
     Dosage: 1G/6H IF REQUIRED
  15. ACETAMINOPHEN [Concomitant]
     Active Substance: ACETAMINOPHEN
     Dosage: 1G/6H IF REQUIRED
  16. XANAX [Concomitant]
     Active Substance: ALPRAZOLAM
     Dosage: 1 TABLET AT 8:00 , 1 TABLET AT 12:00, 1 TABLET AT 19:00
  17. XANAX [Concomitant]
     Active Substance: ALPRAZOLAM
     Dosage: 1 TABLET AT 8:00 , 1 TABLET AT 12:00, 1 TABLET AT 19:00
  18. TROPATEPINE HYDROCHLORIDE [Concomitant]
     Active Substance: TROPATEPINE HYDROCHLORIDE
     Dosage: 1 TABLET AT 8:00, 1 TABLET AT 19:00
  19. TROPATEPINE HYDROCHLORIDE [Concomitant]
     Active Substance: TROPATEPINE HYDROCHLORIDE
     Dosage: 1 TABLET AT 8:00, 1 TABLET AT 19:00
  20. DUPHALAC [Concomitant]
     Active Substance: LACTULOSE
     Dosage: 1 SACHET AT 8 :00, 1 SACHET AT 12 :00 , 1 SACHET AT 19 :00
  21. DUPHALAC [Concomitant]
     Active Substance: LACTULOSE
     Dosage: 1 SACHET AT 8 :00, 1 SACHET AT 12 :00 , 1 SACHET AT 19 :00
  22. IMOVANE [Concomitant]
     Active Substance: ZOPICLONE
     Dosage: 1 COMP / TABLET)
  23. IMOVANE [Concomitant]
     Active Substance: ZOPICLONE
     Dosage: 1 COMP / TABLET)
  24. RISPERDAL [Concomitant]
     Active Substance: RISPERIDONE
     Dosage: 1 TABLET AT 8:00, 1 TABLET AT 19:00
  25. RISPERDAL [Concomitant]
     Active Substance: RISPERIDONE
     Dosage: 1 TABLET AT 8:00, 1 TABLET AT 19:00
  26. ALPRAZOLAM [Concomitant]
     Active Substance: ALPRAZOLAM
     Dosage: 30 DF,1X
     Route: 065
     Dates: start: 20161127, end: 20161127
  27. ALPRAZOLAM [Concomitant]
     Active Substance: ALPRAZOLAM
     Indication: Product used for unknown indication
     Dosage: UNK UNK,UNK
     Route: 065
  28. ALPRAZOLAM [Concomitant]
     Active Substance: ALPRAZOLAM
     Dosage: .5 DF,QD
     Route: 065
     Dates: start: 201611
  29. ALPRAZOLAM [Concomitant]
     Active Substance: ALPRAZOLAM
     Dosage: UNK UNK,UNK
     Route: 065
  30. ALPRAZOLAM [Concomitant]
     Active Substance: ALPRAZOLAM
     Dosage: UNK UNK,UNK
     Route: 065
  31. ASPIRIN [Concomitant]
     Active Substance: ASPIRIN
     Dosage: 100 MG/DAY
  32. ASPIRIN [Concomitant]
     Active Substance: ASPIRIN
     Dosage: 100 MG/DAY

REACTIONS (40)
  - Unevaluable event [Unknown]
  - Arthralgia [Not Recovered/Not Resolved]
  - Mental disorder [Unknown]
  - Persecutory delusion [Unknown]
  - Overdose [Unknown]
  - Suicide attempt [Recovered/Resolved]
  - Asthenia [Unknown]
  - Systemic lupus erythematosus [Unknown]
  - Diarrhoea [Unknown]
  - Weight decreased [Unknown]
  - Chronic cutaneous lupus erythematosus [Unknown]
  - Toxicity to various agents [Unknown]
  - Rash erythematous [Unknown]
  - Frostbite [Recovering/Resolving]
  - Delirium [Unknown]
  - Hallucination, auditory [Unknown]
  - Cardiac arrest [Unknown]
  - Rash [Unknown]
  - Condition aggravated [Unknown]
  - Sleep apnoea syndrome [Unknown]
  - Depression [Recovering/Resolving]
  - Foot fracture [Unknown]
  - Loss of consciousness [Unknown]
  - Drug intolerance [Unknown]
  - Headache [Unknown]
  - Major depression [Unknown]
  - Back pain [Unknown]
  - Toxicity to various agents [Unknown]
  - Psychomotor retardation [Unknown]
  - Malaise [Unknown]
  - Nightmare [Unknown]
  - Psychotic disorder [Unknown]
  - Raynaud^s phenomenon [Unknown]
  - Amnesia [Unknown]
  - Weight decreased [Recovered/Resolved]
  - Peripheral coldness [Recovering/Resolving]
  - Depression [Unknown]
  - Cyanosis [Unknown]
  - Fatigue [Unknown]
  - Sleep disorder [Unknown]

NARRATIVE: CASE EVENT DATE: 20160301
